FAERS Safety Report 18503141 (Version 3)
Quarter: 2020Q4

REPORT INFORMATION
  Report Type: Spontaneous
  Country: CN (occurrence: CN)
  Receive Date: 20201113
  Receipt Date: 20201216
  Transmission Date: 20210114
  Serious: No
  Sender: FDA-Public Use
  Company Number: CN-SA-2020SA317676

PATIENT

DRUGS (1)
  1. LYXUMIA [Suspect]
     Active Substance: LIXISENATIDE
     Dosage: UNK
     Route: 065
     Dates: start: 20201107

REACTIONS (3)
  - Sleep disorder [Recovered/Resolved]
  - Liquid product physical issue [Unknown]
  - Sleep apnoea syndrome [Recovered/Resolved]

NARRATIVE: CASE EVENT DATE: 20201108
